FAERS Safety Report 15202770 (Version 3)
Quarter: 2024Q3

REPORT INFORMATION
  Report Type: Spontaneous
  Country: US (occurrence: US)
  Receive Date: 20180726
  Receipt Date: 20240729
  Transmission Date: 20241017
  Serious: Yes (Hospitalization, Other)
  Sender: OTSUKA
  Company Number: US-OTSUKA-2018_016899

PATIENT
  Sex: Male

DRUGS (2)
  1. ABILIFY [Suspect]
     Active Substance: ARIPIPRAZOLE
     Indication: Major depression
     Dosage: 15 MG, QD
     Route: 065
     Dates: start: 200902, end: 201801
  2. ABILIFY [Suspect]
     Active Substance: ARIPIPRAZOLE
     Indication: Anxiety

REACTIONS (19)
  - Mental disorder [Unknown]
  - Suicide attempt [Recovered/Resolved]
  - Suicidal ideation [Recovered/Resolved]
  - Sexually transmitted disease [Unknown]
  - Obsessive-compulsive disorder [Recovered/Resolved]
  - Compulsive hoarding [Recovered/Resolved]
  - Shoplifting [Recovered/Resolved]
  - Theft [Recovered/Resolved]
  - Compulsive sexual behaviour [Recovered/Resolved]
  - Trichotillomania [Recovered/Resolved]
  - Dermatillomania [Recovered/Resolved]
  - Compulsive shopping [Recovered/Resolved]
  - Compulsions [Recovered/Resolved]
  - Binge eating [Recovered/Resolved]
  - Gambling disorder [Recovered/Resolved]
  - Hypersexuality [Unknown]
  - Loss of employment [Unknown]
  - Economic problem [Unknown]
  - Product use in unapproved indication [Unknown]

NARRATIVE: CASE EVENT DATE: 20090101
